FAERS Safety Report 8042103-9 (Version None)
Quarter: 2011Q4

REPORT INFORMATION
  Report Type: 
  Country: None (occurrence: None)
  Receive Date: 20111208
  Receipt Date: 20110131
  Transmission Date: 20120403
  Serious: Yes (Other)
  Sender: FDA-Public Use
  Company Number: 2011-01195

PATIENT
  Age: 19 Year
  Sex: Female

DRUGS (1)
  1. INFED [Suspect]
     Indication: ANAEMIA
     Dosage: 25 MG, PARTIAL TEST DOSE ONLY, INTRAVENOUS
     Route: 042
     Dates: start: 20110128

REACTIONS (5)
  - DYSPNOEA [None]
  - PRURITUS GENERALISED [None]
  - MATERNAL EXPOSURE DURING PREGNANCY [None]
  - DRUG HYPERSENSITIVITY [None]
  - THROAT TIGHTNESS [None]
